FAERS Safety Report 10244448 (Version 1)
Quarter: 2014Q2

REPORT INFORMATION
  Report Type: Spontaneous
  Country: US (occurrence: None)
  Receive Date: 20140616
  Receipt Date: 20140616
  Transmission Date: 20141212
  Serious: Yes (Death)
  Sender: FDA-Public Use
  Company Number: None

PATIENT
  Age: 86 Year
  Sex: Male

DRUGS (1)
  1. AFLIBERCEPT [Suspect]
     Indication: AGE-RELATED MACULAR DEGENERATION
     Dosage: INTRAVIT Q MONTHLY
     Route: 042
     Dates: start: 20121024, end: 20130123

REACTIONS (1)
  - Cardiac arrest [None]
